FAERS Safety Report 8271311-7 (Version None)
Quarter: 2012Q2

REPORT INFORMATION
  Report Type: 
  Country: None (occurrence: None)
  Receive Date: 20120410
  Receipt Date: 20120405
  Transmission Date: 20120825
  Serious: Yes (Death, Other)
  Sender: FDA-Public Use
  Company Number: US-BAYER-201041846NA

PATIENT
  Age: 92 Year
  Sex: Female
  Weight: 61.224 kg

DRUGS (22)
  1. VERSED [Concomitant]
     Dosage: UNK
     Dates: start: 20041004
  2. PLATELETS [Concomitant]
     Dosage: 6 U, ONCE
     Route: 042
     Dates: start: 20041004
  3. TRASYLOL [Suspect]
     Indication: AORTIC VALVE REPLACEMENT
     Dosage: 100 CC LOAD FOLLOWED BY 25 ML/HR CONTINUOUS INFUSION
     Dates: start: 20041004, end: 20041004
  4. ALBUMIN (HUMAN) [Concomitant]
     Dosage: 125 G, UNK
     Dates: start: 20041004
  5. SUCCINYLCHOLINE CHLORIDE [Concomitant]
     Dosage: UNK
     Dates: start: 20041004
  6. FRESH FROZEN PLASMA [Concomitant]
     Dosage: 4 U, ONCE
     Route: 042
     Dates: start: 20041004
  7. VASOPRESSIN [Concomitant]
     Dosage: UNK
     Dates: start: 20041004, end: 20041004
  8. ESMOLOL HCL [Concomitant]
     Dosage: UNK
     Dates: start: 20041004, end: 20041004
  9. TRASYLOL [Suspect]
     Indication: CORONARY ARTERY BYPASS
     Dosage: 1 ML INTIAL TEST DOSE
     Route: 042
     Dates: start: 20041004, end: 20041004
  10. MANNITOL [Concomitant]
     Dosage: 125 G, UNK
     Dates: start: 20041004
  11. COREG [Concomitant]
     Dosage: 3.125 MG, UNK
     Route: 048
  12. BUMEX [Concomitant]
     Dosage: UNK
     Dates: start: 20041004, end: 20041004
  13. ENALAPRIL MALEATE [Concomitant]
     Dosage: 10 MG, UNK
     Route: 048
  14. NITROGLYCERIN [Concomitant]
     Dosage: UNK
     Dates: start: 20041004
  15. FENTANYL CITRATE [Concomitant]
     Dosage: UNK
     Dates: start: 20041004, end: 20041004
  16. TRASYLOL [Suspect]
     Indication: MITRAL VALVE REPLACEMENT
     Dosage: 200 ML LOADING DOSE
     Route: 042
     Dates: start: 20041004, end: 20041004
  17. NORMOSOL [Concomitant]
     Dosage: 1000 ML, UNK
     Dates: start: 20041004
  18. HEPARIN [Concomitant]
     Dosage: 15000 U, UNK
     Dates: start: 20041004
  19. DOPAMINE HCL [Concomitant]
     Dosage: UNK
     Dates: start: 20041004
  20. PROTAMINE SULFATE [Concomitant]
     Dosage: 200 MG, UNK
     Dates: start: 20041004
  21. RED BLOOD CELLS [Concomitant]
     Dosage: 5 U, ONCE
     Route: 042
     Dates: start: 20041004
  22. FUROSEMIDE [Concomitant]
     Dosage: 40 MG, UNK
     Route: 048

REACTIONS (12)
  - ANXIETY [None]
  - FEAR [None]
  - INJURY [None]
  - DEATH [None]
  - RENAL FAILURE [None]
  - STRESS [None]
  - EMOTIONAL DISTRESS [None]
  - UNEVALUABLE EVENT [None]
  - MULTI-ORGAN FAILURE [None]
  - PAIN [None]
  - RENAL IMPAIRMENT [None]
  - RENAL INJURY [None]
